FAERS Safety Report 9115860 (Version 13)
Quarter: 2014Q4

REPORT INFORMATION
  Report Type: Spontaneous
  Country: US (occurrence: US)
  Receive Date: 20130225
  Receipt Date: 20141208
  Transmission Date: 20150529
  Serious: Yes (Hospitalization, Other)
  Sender: FDA-Public Use
  Company Number: US-GLAXOSMITHKLINE-A1011463A

PATIENT
  Sex: Female

DRUGS (13)
  1. FLOLAN [Suspect]
     Active Substance: EPOPROSTENOL SODIUM
     Dates: start: 20001102
  2. FLOLAN [Suspect]
     Active Substance: EPOPROSTENOL SODIUM
     Dates: start: 20001102
  3. FLOLAN [Suspect]
     Active Substance: EPOPROSTENOL SODIUM
     Dates: start: 20001102
  4. FLOLAN [Suspect]
     Active Substance: EPOPROSTENOL SODIUM
     Dosage: 3 NG/KG/MIN
  5. ADEMPAS [Suspect]
     Active Substance: RIOCIGUAT
     Indication: PRODUCT USED FOR UNKNOWN INDICATION
     Dosage: 1.5 MG THREE TIMES DAILY
     Route: 048
     Dates: start: 201407
  6. FLOLAN [Suspect]
     Active Substance: EPOPROSTENOL SODIUM
     Indication: PULMONARY ARTERIAL HYPERTENSION
     Dosage: 28 NG/KG/MIN CONTINUOUSLY, CONCENTRATION 30,000 NG/ML; 1.5 MG VIAL STRENGTH,28 NG/KG/MIN; CONCE[...]
     Route: 042
     Dates: start: 20001102
  7. FLOLAN [Suspect]
     Active Substance: EPOPROSTENOL SODIUM
     Dates: start: 20001102
  8. FLOLAN [Suspect]
     Active Substance: EPOPROSTENOL SODIUM
     Dates: start: 20001102
  9. FLOLAN [Suspect]
     Active Substance: EPOPROSTENOL SODIUM
     Dates: start: 20001102
  10. FLOLAN [Suspect]
     Active Substance: EPOPROSTENOL SODIUM
     Dates: start: 20001102
  11. FLOLAN [Suspect]
     Active Substance: EPOPROSTENOL SODIUM
     Dates: start: 20001102
  12. FLOLAN [Suspect]
     Active Substance: EPOPROSTENOL SODIUM
     Dates: start: 20001102
  13. FLOLAN [Suspect]
     Active Substance: EPOPROSTENOL SODIUM
     Dosage: UNK
     Dates: start: 20001102

REACTIONS (15)
  - Catheter site infection [Unknown]
  - Catheter site erythema [Unknown]
  - Road traffic accident [Unknown]
  - Dry skin [Not Recovered/Not Resolved]
  - Haematoma [Not Recovered/Not Resolved]
  - Surgery [Unknown]
  - Device related infection [Unknown]
  - Adverse event [Unknown]
  - Fatigue [Not Recovered/Not Resolved]
  - Somnolence [Unknown]
  - Pruritus [Not Recovered/Not Resolved]
  - Pain in extremity [Recovered/Resolved]
  - Constipation [Not Recovered/Not Resolved]
  - Catheter site inflammation [Unknown]
  - Oedema peripheral [Not Recovered/Not Resolved]

NARRATIVE: CASE EVENT DATE: 2014
